FAERS Safety Report 12086842 (Version 1)
Quarter: 2016Q1

REPORT INFORMATION
  Report Type: Spontaneous
  Country: US (occurrence: US)
  Receive Date: 20160217
  Receipt Date: 20160217
  Transmission Date: 20160526
  Serious: No
  Sender: FDA-Public Use
  Company Number: US-ALLERGAN-1509127US

PATIENT
  Age: 86 Year
  Sex: Female

DRUGS (6)
  1. SYSTANE LUBRICANT [Concomitant]
     Active Substance: POLYETHYLENE GLYCOL 400\PROPYLENE GLYCOL
     Indication: DRY EYE
     Dosage: UNK UNK, PRN
     Route: 047
     Dates: start: 201403
  2. RESTASIS [Suspect]
     Active Substance: CYCLOSPORINE
     Indication: DRY EYE
     Dosage: 2 GTT, QD
     Route: 047
     Dates: start: 201403
  3. REFRESH LIQUIGEL [Concomitant]
     Active Substance: CARBOXYMETHYLCELLULOSE SODIUM
     Indication: DRY EYE
     Dosage: UNK, PRN
     Route: 047
     Dates: start: 201403
  4. DIGOXIN. [Concomitant]
     Active Substance: DIGOXIN
     Indication: HEART RATE IRREGULAR
     Dosage: 125 ?G, QD
     Route: 048
  5. LEVOTHYROXINE. [Concomitant]
     Active Substance: LEVOTHYROXINE
     Indication: THYROID DISORDER
     Dosage: 75 ?G, QD
     Route: 048
  6. ASPIRIN. [Concomitant]
     Active Substance: ASPIRIN
     Indication: HEART RATE IRREGULAR
     Dosage: 81 MG, QD
     Route: 048

REACTIONS (5)
  - Eye irritation [Not Recovered/Not Resolved]
  - Eye pain [Not Recovered/Not Resolved]
  - Eye discharge [Recovered/Resolved]
  - Eye pruritus [Not Recovered/Not Resolved]
  - Accidental exposure to product [Unknown]

NARRATIVE: CASE EVENT DATE: 201403
